FAERS Safety Report 7653841-1 (Version None)
Quarter: 2011Q3

REPORT INFORMATION
  Report Type: 
  Country: None (occurrence: None)
  Receive Date: 20110727
  Receipt Date: 20100825
  Transmission Date: 20111222
  Serious: Yes (Hospitalization)
  Sender: FDA-Public Use
  Company Number: OMPQ-PR-1006S-0413

PATIENT
  Age: 62 Year
  Sex: Male
  Weight: 88.4514 kg

DRUGS (4)
  1. OMNIPAQUE 140 [Suspect]
     Indication: FAMILIAL RISK FACTOR
     Dosage: 200 ML, SINGLE DOSE, INTRAVENOUS
     Route: 042
     Dates: start: 20100617, end: 20100617
  2. OMNIPAQUE 140 [Suspect]
     Indication: CORONARY ARTERY DISEASE
     Dosage: 200 ML, SINGLE DOSE, INTRAVENOUS
     Route: 042
     Dates: start: 20100617, end: 20100617
  3. OMNIPAQUE 140 [Suspect]
     Indication: ARTERIOSCLEROSIS CORONARY ARTERY
     Dosage: 200 ML, SINGLE DOSE, INTRAVENOUS
     Route: 042
     Dates: start: 20100617, end: 20100617
  4. VALSARTAN (DIOVAN) (VALSARTAN) [Concomitant]

REACTIONS (2)
  - CHILLS [None]
  - PYREXIA [None]
